FAERS Safety Report 14798193 (Version 1)
Quarter: 2018Q2

REPORT INFORMATION
  Report Type: Report from Study
  Country: PL (occurrence: PL)
  Receive Date: 20180424
  Receipt Date: 20180424
  Transmission Date: 20180711
  Serious: Yes (Death, Other)
  Sender: FDA-Public Use
  Company Number: PL-VISTAPHARM, INC.-VER201804-000599

PATIENT
  Age: 8 Year
  Sex: Female
  Weight: 2.64 kg

DRUGS (1)
  1. VALPROIC ACID. [Suspect]
     Active Substance: VALPROIC ACID
     Indication: SEIZURE

REACTIONS (8)
  - Renal failure [Fatal]
  - Hyperlactacidaemia [Unknown]
  - Hepatic failure [Fatal]
  - General physical health deterioration [Fatal]
  - Congestive cardiomyopathy [Unknown]
  - Mitochondrial toxicity [Unknown]
  - Drug hypersensitivity [Unknown]
  - Multiple organ dysfunction syndrome [Fatal]
